FAERS Safety Report 4273655-2 (Version None)
Quarter: 2004Q1

REPORT INFORMATION
  Report Type: 
  Country: None (occurrence: None)
  Receive Date: 20040116
  Receipt Date: 20040116
  Transmission Date: 20041129
  Serious: No
  Sender: FDA-Public Use
  Company Number: None

PATIENT
  Sex: Male
  Weight: 74.8435 kg

DRUGS (10)
  1. IRBESARTAN 300 MG [Suspect]
     Indication: HYPERTENSION
     Dosage: 150 MG DAILY ORAL
     Route: 048
     Dates: start: 20030613, end: 20040910
  2. ACETAMINOPHEN [Concomitant]
  3. ASPIRIN [Concomitant]
  4. DOCUSATE [Concomitant]
  5. FUROSEMIDE [Concomitant]
  6. METOPROLOL TARTRATE [Concomitant]
  7. NITROGLYCERIN [Concomitant]
  8. PENTOXYFILLINE [Concomitant]
  9. SIMVASTATIN [Concomitant]
  10. KCL TAB [Concomitant]

REACTIONS (1)
  - SWELLING FACE [None]
